FAERS Safety Report 7484514-6 (Version None)
Quarter: 2011Q2

REPORT INFORMATION
  Report Type: 
  Country: None (occurrence: None)
  Receive Date: 20110517
  Receipt Date: 20110509
  Transmission Date: 20111010
  Serious: No
  Sender: FDA-Public Use
  Company Number: US-BIOGENIDEC-2011BI001771

PATIENT
  Sex: Female

DRUGS (3)
  1. TYSABRI [Suspect]
     Indication: MULTIPLE SCLEROSIS
     Route: 042
     Dates: start: 20080721, end: 20090801
  2. AVONEX [Concomitant]
     Route: 030
     Dates: start: 20080701
  3. AVONEX [Concomitant]
     Indication: MULTIPLE SCLEROSIS
     Route: 030
     Dates: start: 20030301

REACTIONS (10)
  - TOOTH INFECTION [None]
  - ORAL INFECTION [None]
  - GINGIVAL PAIN [None]
  - POST PROCEDURAL INFECTION [None]
  - GINGIVAL INFECTION [None]
  - MULTIPLE SCLEROSIS RELAPSE [None]
  - IMPLANT SITE REACTION [None]
  - PNEUMONIA [None]
  - DIARRHOEA [None]
  - JAW OPERATION [None]
